FAERS Safety Report 4602909-2 (Version None)
Quarter: 2005Q1

REPORT INFORMATION
  Report Type: 
  Country: None (occurrence: None)
  Receive Date: 20050309
  Receipt Date: 20050307
  Transmission Date: 20050727
  Serious: Yes (Life-Threatening)
  Sender: FDA-Public Use
  Company Number: 13.559

PATIENT
  Age: 57 Year
  Sex: Female
  Weight: 70 kg

DRUGS (2)
  1. AUGMENTIN '125' [Suspect]
     Dosage: 1000MG THREE TIMES PER DAY
     Route: 048
     Dates: start: 20040618, end: 20040621
  2. TILIDIN COMP [Concomitant]
     Route: 048
     Dates: start: 20040618, end: 20040621

REACTIONS (4)
  - GAMMA-GLUTAMYLTRANSFERASE INCREASED [None]
  - HEPATITIS TOXIC [None]
  - HYPERBILIRUBINAEMIA [None]
  - RED BLOOD CELL SEDIMENTATION RATE INCREASED [None]
